FAERS Safety Report 24027912 (Version 1)
Quarter: 2024Q2

REPORT INFORMATION
  Report Type: Spontaneous
  Country: US (occurrence: US)
  Receive Date: 20240628
  Receipt Date: 20240628
  Transmission Date: 20240715
  Serious: Yes (Other)
  Sender: FDA-Public Use
  Company Number: US-AMGEN-USASP2024124014

PATIENT
  Age: 72 Year
  Sex: Male

DRUGS (2)
  1. PREDNISONE [Suspect]
     Active Substance: PREDNISONE
     Indication: Giant cell arteritis
     Dosage: UNK MILLIGRAM, QD
     Route: 065
  2. UPADACITINIB [Concomitant]
     Active Substance: UPADACITINIB
     Indication: Giant cell arteritis
     Dosage: 15 MILLIGRAM, QD
     Route: 065

REACTIONS (1)
  - Glioblastoma multiforme [Unknown]
